FAERS Safety Report 7048456-2 (Version None)
Quarter: 2010Q4

REPORT INFORMATION
  Report Type: 
  Country: None (occurrence: None)
  Receive Date: 20101015
  Receipt Date: 20101015
  Transmission Date: 20110411
  Serious: No
  Sender: FDA-Public Use
  Company Number: None

PATIENT

DRUGS (1)
  1. VYTORIN [Suspect]

REACTIONS (7)
  - ABASIA [None]
  - ACTIVITIES OF DAILY LIVING IMPAIRED [None]
  - CHEST PAIN [None]
  - EYE DISORDER [None]
  - OPTIC ISCHAEMIC NEUROPATHY [None]
  - RESPIRATORY DISORDER [None]
  - THROMBOSIS [None]
